FAERS Safety Report 4516677-6 (Version None)
Quarter: 2004Q4

REPORT INFORMATION
  Report Type: 
  Country: None (occurrence: None)
  Receive Date: 20041202
  Receipt Date: 20030331
  Transmission Date: 20050328
  Serious: Yes (Death, Life-Threatening)
  Sender: FDA-Public Use
  Company Number: 12226866

PATIENT
  Age: 49 Year
  Sex: Female

DRUGS (5)
  1. TAMOXIFEN CITRATE [Suspect]
     Indication: BREAST CANCER
  2. CYCLOPHOSPHAMIDE [Suspect]
     Indication: BREAST CANCER
  3. EPIRUBICIN [Suspect]
     Indication: BREAST CANCER
  4. FLUOROURACIL [Suspect]
     Indication: BREAST CANCER
  5. RADIATION THERAPY [Suspect]
     Indication: BREAST CANCER

REACTIONS (5)
  - CARDIAC FAILURE ACUTE [None]
  - MYOCARDIAL ISCHAEMIA [None]
  - PHLEBOTHROMBOSIS [None]
  - PULMONARY EMBOLISM [None]
  - VENTRICULAR DYSFUNCTION [None]
